FAERS Safety Report 10450561 (Version 2)
Quarter: 2014Q4

REPORT INFORMATION
  Report Type: Spontaneous
  Country: US (occurrence: US)
  Receive Date: 20140912
  Receipt Date: 20141006
  Transmission Date: 20150528
  Serious: No
  Sender: FDA-Public Use
  Company Number: US-PFIZER INC-2014252902

PATIENT
  Age: 53 Year
  Sex: Female
  Weight: 89.8 kg

DRUGS (4)
  1. IBUPROFEN. [Concomitant]
     Active Substance: IBUPROFEN
     Dosage: 800 MG, 3X/DAY (WITH FOOD)
     Route: 048
  2. CHANTIX [Suspect]
     Active Substance: VARENICLINE TARTRATE
     Indication: SMOKING CESSATION THERAPY
     Dosage: UNK, (TAKE 1/2 TABLET (0.5MG) BY ORAL ROUTE EVERY DAY WITH A GLASS OF WATER MEALS)
     Route: 048
     Dates: start: 2007
  3. CHANTIX [Suspect]
     Active Substance: VARENICLINE TARTRATE
     Dosage: 0.5 MG, DAILY
     Route: 048
     Dates: start: 20100910
  4. HYDROCODONE ACETAMINOPHEN [Concomitant]
     Active Substance: ACETAMINOPHEN\HYDROCODONE BITARTRATE
     Indication: PAIN
     Dosage: 7.5/325 MG, (1 TABLET BY ORAL ROUTE EVERY 6 HOURS) AS NEEDED
     Route: 048

REACTIONS (3)
  - Intentional product misuse [Unknown]
  - Arthritis [Unknown]
  - Hypertension [Not Recovered/Not Resolved]

NARRATIVE: CASE EVENT DATE: 2012
